FAERS Safety Report 6180077-6 (Version None)
Quarter: 2009Q2

REPORT INFORMATION
  Report Type: 
  Country: None (occurrence: None)
  Receive Date: 20090501
  Receipt Date: 20090429
  Transmission Date: 20091009
  Serious: Yes (Other)
  Sender: FDA-Public Use
  Company Number: SP01831

PATIENT
  Age: 63 Year
  Sex: Female
  Weight: 42.6381 kg

DRUGS (3)
  1. MOVIPREP [Suspect]
     Indication: BOWEL PREPARATION
     Dosage: 5/8 MOVIPREP KIT, ORAL
     Route: 048
     Dates: start: 20080302, end: 20080303
  2. MOVIPREP [Suspect]
     Indication: COLONOSCOPY
     Dosage: 5/8 MOVIPREP KIT, ORAL
     Route: 048
     Dates: start: 20080302, end: 20080303
  3. LEVOTHYROXINE SODIUM [Concomitant]

REACTIONS (4)
  - ANGINA PECTORIS [None]
  - CONDITION AGGRAVATED [None]
  - GASTROOESOPHAGEAL REFLUX DISEASE [None]
  - INSOMNIA [None]
